FAERS Safety Report 18929587 (Version 3)
Quarter: 2021Q3

REPORT INFORMATION
  Report Type: Report from Study
  Country: US (occurrence: US)
  Receive Date: 20210223
  Receipt Date: 20210817
  Transmission Date: 20211014
  Serious: Yes (Other)
  Sender: FDA-Public Use
  Company Number: US-TAKEDA-2021TUS010896

PATIENT
  Age: 49 Year
  Sex: Female
  Weight: 68 kg

DRUGS (14)
  1. ACETAMINOPHEN. [Concomitant]
     Active Substance: ACETAMINOPHEN
  2. DIPHENHYDRAMINE. [Concomitant]
     Active Substance: DIPHENHYDRAMINE
  3. DIFLUCAN [Concomitant]
     Active Substance: FLUCONAZOLE
  4. FLUTICASONE. [Concomitant]
     Active Substance: FLUTICASONE
  5. ESTRADIOL. [Concomitant]
     Active Substance: ESTRADIOL
  6. CUVITRU [Suspect]
     Active Substance: HUMAN IMMUNOGLOBULIN G
     Dosage: 11 GRAM, 1/WEEK
     Route: 058
  7. NAPROXEN. [Concomitant]
     Active Substance: NAPROXEN
  8. CLARITIN?D NOS [Concomitant]
     Active Substance: LORATADINE\PSEUDOEPHEDRINE SULFATE
  9. NORGESTIMATE AND ETHINYL ESTRADIOL [Concomitant]
     Active Substance: ETHINYL ESTRADIOL\NORGESTIMATE
  10. CUVITRU [Suspect]
     Active Substance: HUMAN IMMUNOGLOBULIN G
     Indication: IMMUNODEFICIENCY COMMON VARIABLE
     Dosage: 12 GRAM, 1/WEEK
     Route: 058
     Dates: start: 20210203
  11. VITAMIN D2 [Concomitant]
     Active Substance: ERGOCALCIFEROL
  12. MULTIVITAMINS [VITAMINS NOS] [Concomitant]
     Active Substance: VITAMINS
  13. AIRBORNE [Concomitant]
     Active Substance: HERBALS\MINERALS\VITAMINS
  14. EPINEPHRINE. [Concomitant]
     Active Substance: EPINEPHRINE

REACTIONS (5)
  - Appendicitis [Unknown]
  - Therapy interrupted [Recovering/Resolving]
  - Nausea [Unknown]
  - Headache [Unknown]
  - Hyperhidrosis [Unknown]

NARRATIVE: CASE EVENT DATE: 20210207
